FAERS Safety Report 9646138 (Version 3)
Quarter: 2014Q1

REPORT INFORMATION
  Report Type: Spontaneous
  Country: IT (occurrence: IT)
  Receive Date: 20131025
  Receipt Date: 20140204
  Transmission Date: 20141002
  Serious: Yes (Hospitalization)
  Sender: FDA-Public Use
  Company Number: IT-WATSON-2013-19220

PATIENT
  Age: 75 Year
  Sex: Female

DRUGS (4)
  1. SERTRALINE HYDROCHLORIDE (UNKNOWN) [Suspect]
     Indication: ANXIETY
     Dosage: 150 MG, DAILY
     Route: 048
     Dates: start: 20130625, end: 20130725
  2. GABAPENTIN [Concomitant]
     Indication: ANXIETY
     Dosage: 900 MG, UNK
     Route: 048
  3. LORAZEPAM [Concomitant]
     Indication: ANXIETY
     Dosage: 9 MG, UNK
     Route: 048
  4. PROMAZINE HYDROCHLORIDE [Concomitant]
     Indication: ANXIETY
     Dosage: 10 DROPS
     Route: 065

REACTIONS (3)
  - Dyspnoea [Recovering/Resolving]
  - Psychomotor hyperactivity [Recovering/Resolving]
  - Vertigo [Recovering/Resolving]
